FAERS Safety Report 5400773-5 (Version None)
Quarter: 2007Q3

REPORT INFORMATION
  Report Type: 
  Country: None (occurrence: None)
  Receive Date: 20070730
  Receipt Date: 20070718
  Transmission Date: 20080115
  Serious: Yes (Hospitalization)
  Sender: FDA-Public Use
  Company Number: GB-PFIZER INC-2007060122

PATIENT
  Age: 16 Year
  Sex: Female

DRUGS (4)
  1. ETHOSUXIMIDE [Suspect]
     Indication: EPILEPSY
     Route: 048
     Dates: start: 20070516, end: 20070628
  2. CLOBAZAM [Concomitant]
     Indication: EPILEPSY
     Route: 048
  3. TOPIRAMATE [Concomitant]
     Indication: EPILEPSY
     Route: 048
  4. ZONEGRAN [Concomitant]
     Indication: EPILEPSY
     Route: 048

REACTIONS (2)
  - HALLUCINATION, TACTILE [None]
  - HALLUCINATION, VISUAL [None]
